FAERS Safety Report 14202644 (Version 16)
Quarter: 2020Q1

REPORT INFORMATION
  Report Type: Report from Study
  Country: CA (occurrence: CA)
  Receive Date: 20171118
  Receipt Date: 20200326
  Transmission Date: 20200409
  Serious: Yes (Hospitalization, Other)
  Sender: FDA-Public Use
  Company Number: CA-BRISTOL-MYERS SQUIBB COMPANY-BMS-2017-093393

PATIENT
  Age: 46 Year
  Sex: Female

DRUGS (5)
  1. ESOMEPRAZOLE. [Concomitant]
     Active Substance: ESOMEPRAZOLE MAGNESIUM
     Indication: DYSPEPSIA
     Dosage: 30 MG, UNK
     Route: 048
  2. ABATACEPT [Suspect]
     Active Substance: ABATACEPT
     Indication: RHEUMATOID ARTHRITIS
     Dosage: 750 MG, Q4WK
     Route: 042
     Dates: start: 20090318
  3. BUPROPION. [Concomitant]
     Active Substance: BUPROPION
     Indication: PRODUCT USED FOR UNKNOWN INDICATION
     Route: 065
  4. STATEX [MORPHINE SULFATE] [Concomitant]
     Active Substance: MORPHINE SULFATE
     Indication: PRODUCT USED FOR UNKNOWN INDICATION
     Route: 065
  5. CELEXA [Concomitant]
     Active Substance: CITALOPRAM HYDROBROMIDE
     Indication: ANXIETY
     Dosage: 40 MILLIGRAM
     Route: 048

REACTIONS (50)
  - Dislocation of vertebra [Unknown]
  - Non-cardiac chest pain [Unknown]
  - Oxygen saturation decreased [Unknown]
  - Pleural effusion [Recovering/Resolving]
  - Pharyngitis [Recovering/Resolving]
  - Dizziness [Recovering/Resolving]
  - Mass [Unknown]
  - Diarrhoea [Unknown]
  - Hypertension [Unknown]
  - Fatigue [Unknown]
  - Oropharyngeal pain [Not Recovered/Not Resolved]
  - Intervertebral disc protrusion [Unknown]
  - Sinusitis [Recovered/Resolved]
  - Asthma [Recovered/Resolved]
  - Pulmonary embolism [Unknown]
  - Rash macular [Unknown]
  - Musculoskeletal pain [Unknown]
  - Pyrexia [Recovered/Resolved]
  - Granulomatosis with polyangiitis [Unknown]
  - Weight decreased [Unknown]
  - Bronchitis [Unknown]
  - Fall [Unknown]
  - Thyroid mass [Unknown]
  - Cervical spinal stenosis [Unknown]
  - Vomiting [Unknown]
  - Productive cough [Unknown]
  - Dyspnoea [Unknown]
  - Chest pain [Unknown]
  - Malaise [Unknown]
  - Blood pressure decreased [Unknown]
  - Pneumonia [Recovering/Resolving]
  - Back pain [Unknown]
  - Urine odour abnormal [Unknown]
  - Pain [Recovered/Resolved]
  - Spinal osteoarthritis [Unknown]
  - Insomnia [Unknown]
  - Influenza like illness [Unknown]
  - Wound infection [Unknown]
  - Rheumatoid arthritis [Unknown]
  - Headache [Unknown]
  - Cough [Not Recovered/Not Resolved]
  - Dysgeusia [Unknown]
  - Movement disorder [Unknown]
  - Appendicitis [Recovering/Resolving]
  - Adverse event [Unknown]
  - Nausea [Recovering/Resolving]
  - Heart rate increased [Unknown]
  - Decreased appetite [Unknown]
  - Wound secretion [Unknown]
  - Hypoaesthesia [Unknown]

NARRATIVE: CASE EVENT DATE: 20171016
